FAERS Safety Report 17064623 (Version 1)
Quarter: 2019Q4

REPORT INFORMATION
  Report Type: Spontaneous
  Country: US (occurrence: US)
  Receive Date: 20191122
  Receipt Date: 20191122
  Transmission Date: 20200122
  Serious: No
  Sender: FDA-Public Use
  Company Number: US-PFIZER INC-2019505709

PATIENT
  Age: 43 Year
  Sex: Female

DRUGS (3)
  1. LYRICA [Suspect]
     Active Substance: PREGABALIN
     Dosage: 225 MG, 1X/DAY, [QHS [ORAL, EVERY NIGHT AT BEDTIME]]
     Route: 048
  2. CYMBALTA [Concomitant]
     Active Substance: DULOXETINE HYDROCHLORIDE
     Dosage: UNK
  3. LYRICA [Suspect]
     Active Substance: PREGABALIN
     Dosage: 225 MG, 2X/DAY, [SOME DAYS 225MG BID [TWICE DAILY]]

REACTIONS (3)
  - Amnesia [Unknown]
  - Vision blurred [Unknown]
  - Intentional product misuse [Unknown]
